FAERS Safety Report 16277454 (Version 1)
Quarter: 2019Q2

REPORT INFORMATION
  Report Type: Spontaneous
  Country: JP (occurrence: JP)
  Receive Date: 20190506
  Receipt Date: 20190506
  Transmission Date: 20190711
  Serious: Yes (Hospitalization, Other)
  Sender: FDA-Public Use
  Company Number: JP-PFIZER INC-2019183796

PATIENT
  Age: 58 Year
  Sex: Male

DRUGS (9)
  1. SUTENT [Suspect]
     Active Substance: SUNITINIB MALATE
     Indication: RENAL CELL CARCINOMA
     Dosage: 37.5 MG, UNK
     Dates: start: 20150311
  2. SUTENT [Suspect]
     Active Substance: SUNITINIB MALATE
     Dosage: 25 MG, UNK
     Dates: start: 20160121
  3. SUTENT [Suspect]
     Active Substance: SUNITINIB MALATE
     Dosage: 25 MG, UNK
     Dates: start: 20160707
  4. SUTENT [Suspect]
     Active Substance: SUNITINIB MALATE
     Dosage: UNK
     Dates: start: 201608, end: 20170119
  5. SUTENT [Suspect]
     Active Substance: SUNITINIB MALATE
     Dosage: UNKNOWN DOSE, 2 WEEK-ON AND 1 WEEK-OFF
     Dates: start: 20150529
  6. SUTENT [Suspect]
     Active Substance: SUNITINIB MALATE
     Dosage: 25 MG, UNK
     Dates: start: 20151027
  7. SUTENT [Suspect]
     Active Substance: SUNITINIB MALATE
     Dosage: 37.5 MG, UNK
     Dates: start: 20160204
  8. SUTENT [Suspect]
     Active Substance: SUNITINIB MALATE
     Dosage: 12.5 MG, UNK
     Dates: start: 20170223, end: 20170510
  9. SUTENT [Suspect]
     Active Substance: SUNITINIB MALATE
     Dosage: 37.5 MG, UNK
     Dates: start: 20151112

REACTIONS (7)
  - Platelet count decreased [Unknown]
  - Myocardial infarction [Unknown]
  - Impaired healing [Unknown]
  - Blood thyroid stimulating hormone increased [Unknown]
  - Renal impairment [Unknown]
  - Postoperative wound infection [Unknown]
  - Hypertension [Unknown]

NARRATIVE: CASE EVENT DATE: 20151008
